FAERS Safety Report 5961158-6 (Version None)
Quarter: 2008Q4

REPORT INFORMATION
  Report Type: 
  Country: None (occurrence: None)
  Receive Date: 20081119
  Receipt Date: 20081104
  Transmission Date: 20090506
  Serious: Yes (Other)
  Sender: FDA-Public Use
  Company Number: SPV1-2008-02400

PATIENT
  Sex: Female

DRUGS (1)
  1. ANAGRELIDE HYDROCHLORIDE [Suspect]

REACTIONS (1)
  - MULTIPLE SCLEROSIS [None]
